FAERS Safety Report 7432011-6 (Version None)
Quarter: 2011Q1

REPORT INFORMATION
  Report Type: 
  Country: None (occurrence: None)
  Receive Date: 20110320
  Receipt Date: 20090501
  Transmission Date: 20110831
  Serious: Yes (Other)
  Sender: FDA-Public Use
  Company Number: 8044279

PATIENT
  Sex: Female
  Weight: 59 kg

DRUGS (4)
  1. ORTHO CYCLEN-28 [Concomitant]
  2. BENADRYL [Concomitant]
  3. CERTOLIZUMAB PEGOL (UCB, INC) [Suspect]
     Indication: CROHN'S DISEASE
     Dosage: 400 MG, DAILY SUBCUTANEOUS
     Route: 058
     Dates: start: 20090315, end: 20090325
  4. PREDNISONE [Concomitant]

REACTIONS (10)
  - HYPOAESTHESIA [None]
  - PYREXIA [None]
  - PNEUMONIA PNEUMOCOCCAL [None]
  - PAIN [None]
  - COUGH [None]
  - ABDOMINAL PAIN [None]
  - THERAPY REGIMEN CHANGED [None]
  - LEUKOPENIA [None]
  - RASH [None]
  - MYALGIA [None]
